FAERS Safety Report 4490730-8 (Version None)
Quarter: 2004Q4

REPORT INFORMATION
  Report Type: 
  Country: None (occurrence: None)
  Receive Date: 20041025
  Receipt Date: 20041008
  Transmission Date: 20050328
  Serious: Yes (Other)
  Sender: FDA-Public Use
  Company Number: 200410343BBE

PATIENT
  Sex: Male
  Weight: 61.2356 kg

DRUGS (2)
  1. GAMUNEX [Suspect]
     Dosage: 25 G, ONCE, INTRAVENOUS
     Route: 042
     Dates: start: 20040925
  2. CARIMUNE [Concomitant]

REACTIONS (6)
  - DEHYDRATION [None]
  - FATIGUE [None]
  - HEADACHE [None]
  - MENINGITIS ASEPTIC [None]
  - NUCHAL RIGIDITY [None]
  - PHOTOPHOBIA [None]
